FAERS Safety Report 9380325 (Version 1)
Quarter: 2013Q3

REPORT INFORMATION
  Report Type: Spontaneous
  Country: FR (occurrence: FR)
  Receive Date: 20130702
  Receipt Date: 20130702
  Transmission Date: 20140515
  Serious: Yes (Hospitalization)
  Sender: FDA-Public Use
  Company Number: FR-VERTEX PHARMACEUTICALS INC-2013-007645

PATIENT
  Sex: Male
  Weight: 58 kg

DRUGS (4)
  1. INCIVO [Suspect]
     Indication: PRODUCT USED FOR UNKNOWN INDICATION
     Dosage: 3 TABS IN THE MPRNING AND 3 TABS IN THE EVENING
     Route: 048
     Dates: start: 201104
  2. VIRAFERON [Suspect]
     Indication: PRODUCT USED FOR UNKNOWN INDICATION
     Dosage: DOSAGE FORM: UNSPECIFIED
     Route: 050
     Dates: start: 201104
  3. REBETOL [Suspect]
     Indication: PRODUCT USED FOR UNKNOWN INDICATION
     Dosage: DOSAGE FORM: CAPSULES, 3 CAPSULES IN MORNING AND 2 CAPSULES IN EVENING
     Route: 048
     Dates: start: 201104
  4. PARACETAMOL [Suspect]
     Indication: PRODUCT USED FOR UNKNOWN INDICATION
     Dosage: DOSAGE FORM: UNSPECIFIED, 1-3 PER DAY (INJECTION DAY)
     Route: 050
     Dates: start: 201104

REACTIONS (4)
  - Asthenia [Unknown]
  - Malaise [Unknown]
  - Hepatomegaly [Unknown]
  - Thrombocytopenia [Unknown]
